FAERS Safety Report 17830795 (Version 1)
Quarter: 2020Q2

REPORT INFORMATION
  Report Type: Spontaneous
  Country: PL (occurrence: PL)
  Receive Date: 20200527
  Receipt Date: 20200527
  Transmission Date: 20200714
  Serious: Yes (Other)
  Sender: FDA-Public Use
  Company Number: PL-MYLANLABS-2020M1051578

PATIENT
  Age: 50 Year
  Sex: Female

DRUGS (5)
  1. ANASTROZOLE. [Concomitant]
     Active Substance: ANASTROZOLE
     Indication: BREAST CANCER
     Dosage: UNK
  2. TAMOXIFEN [Suspect]
     Active Substance: TAMOXIFEN
     Indication: BREAST CANCER
     Dosage: 20 MILLIGRAM, QD
     Route: 048
     Dates: end: 201705
  3. FULVESTRANT. [Suspect]
     Active Substance: FULVESTRANT
     Indication: BREAST CANCER METASTATIC
     Dosage: UNK, THE FIRST 3 DOSES GIVEN EVERY 2 WEEKS, THE FOLLOWING
     Route: 030
  4. ZOLEDRONIC ACID [Concomitant]
     Active Substance: ZOLEDRONIC ACID
     Dosage: UNK
     Dates: end: 201705
  5. RIBOCICLIB. [Concomitant]
     Active Substance: RIBOCICLIB
     Dosage: 600 MG DAILY, TAKEN ORALLY FOR 21 CONSECUTIVE DAYS FOLLOWED BY 7 DAYS OFF TREATMENT

REACTIONS (4)
  - Malignant neoplasm progression [Unknown]
  - Anaemia [Recovered/Resolved]
  - Thrombocytopenia [Recovered/Resolved]
  - Drug ineffective [Unknown]
